FAERS Safety Report 7404806-6 (Version None)
Quarter: 2011Q2

REPORT INFORMATION
  Report Type: 
  Country: None (occurrence: None)
  Receive Date: 20110411
  Receipt Date: 20110330
  Transmission Date: 20111010
  Serious: Yes (Other)
  Sender: FDA-Public Use
  Company Number: CA-BAYER-2011-015136

PATIENT
  Age: 22 Year
  Sex: Female
  Weight: 54 kg

DRUGS (2)
  1. YAZ [Suspect]
     Indication: CONTRACEPTION
     Dosage: 1 DF, QD
     Dates: start: 20090701, end: 20101001
  2. CIPRALEX [Concomitant]
     Dosage: 20 MG, QD

REACTIONS (2)
  - CHOLELITHIASIS [None]
  - ABDOMINAL PAIN UPPER [None]
